FAERS Safety Report 10035338 (Version 1)
Quarter: 2014Q1

REPORT INFORMATION
  Report Type: Spontaneous
  Country: CA (occurrence: None)
  Receive Date: 20140321
  Receipt Date: 20140321
  Transmission Date: 20141002
  Serious: Yes (Other)
  Sender: FDA-Public Use
  Company Number: 2014CA00233

PATIENT
  Sex: 0

DRUGS (3)
  1. CARBOPLATIN (CARBOPLATIN) INJECTION [Suspect]
     Indication: NON-SMALL CELL LUNG CANCER
     Dosage: AREA UNDER THE CONCENTRATION TIME CURVE 6,30MIN, EVERY 3 WEEKS FOR 4-6 CYCLES
  2. PACLITAXEL (PACLITAXEL) [Suspect]
     Indication: NON-SMALL CELL LUNG CANCER
     Dosage: 200MG/M2, OVER 3H EVERY 3 WEEKS FOR 4-6 CYCLES, INTRAVENOUS
  3. CEDIRANIB/PLACEBO [Suspect]
     Indication: NON-SMALL CELL LUNG CANCER
     Route: 048

REACTIONS (2)
  - Pulmonary haemorrhage [None]
  - Gastrointestinal haemorrhage [None]
